FAERS Safety Report 19464777 (Version 2)
Quarter: 2021Q2

REPORT INFORMATION
  Report Type: Spontaneous
  Country: US (occurrence: US)
  Receive Date: 20210626
  Receipt Date: 20210626
  Transmission Date: 20210717
  Serious: Yes (Hospitalization)
  Sender: FDA-Public Use
  Company Number: NVSC2021US142682

PATIENT
  Age: 60 Year
  Sex: Male

DRUGS (4)
  1. RANITIDINE. [Suspect]
     Active Substance: RANITIDINE
     Indication: DYSPEPSIA
     Dosage: 300 MG, QD
     Route: 048
     Dates: start: 201708, end: 201910
  2. RANITIDINE. [Suspect]
     Active Substance: RANITIDINE
     Indication: FLATULENCE
  3. RANITIDINE. [Suspect]
     Active Substance: RANITIDINE
     Indication: FLATULENCE
  4. RANITIDINE. [Suspect]
     Active Substance: RANITIDINE
     Indication: DYSPEPSIA
     Dosage: 300 MG, QD
     Route: 048
     Dates: start: 201708, end: 201910

REACTIONS (1)
  - Pancreatic carcinoma stage IV [Recovering/Resolving]

NARRATIVE: CASE EVENT DATE: 20190525
